FAERS Safety Report 14310081 (Version 1)
Quarter: 2017Q4

REPORT INFORMATION
  Report Type: Spontaneous
  Country: US (occurrence: US)
  Receive Date: 20171220
  Receipt Date: 20171220
  Transmission Date: 20180321
  Serious: Yes (Disabling)
  Sender: FDA-Public Use
  Company Number: None

PATIENT
  Age: 81 Year
  Sex: Female
  Weight: 52.16 kg

DRUGS (5)
  1. I-CAPS [Concomitant]
  2. LISINOPRIL. [Concomitant]
     Active Substance: LISINOPRIL
  3. CITRACAL [Concomitant]
     Active Substance: CALCIUM CITRATE
  4. DORZOLAMIDE [Concomitant]
     Active Substance: DORZOLAMIDE
  5. LOSARTAN 50MG TABLETS [Suspect]
     Active Substance: LOSARTAN
     Indication: HYPERTENSION
     Dosage: 1 ONCE DAILY BY MOUTH
     Route: 048
     Dates: start: 20141212, end: 20150101

REACTIONS (3)
  - Decreased appetite [None]
  - Food aversion [None]
  - Nausea [None]

NARRATIVE: CASE EVENT DATE: 20150104
